FAERS Safety Report 24105881 (Version 1)
Quarter: 2024Q3

REPORT INFORMATION
  Report Type: Spontaneous
  Country: US (occurrence: US)
  Receive Date: 20240717
  Receipt Date: 20240717
  Transmission Date: 20241017
  Serious: Yes (Death, Other)
  Sender: AMGEN
  Company Number: US-AMGEN-USASP2024138024

PATIENT

DRUGS (2)
  1. BEVACIZUMAB [Suspect]
     Active Substance: BEVACIZUMAB
     Indication: Ovarian cancer
     Dosage: UNK
     Route: 065
  2. PLATINUM [Concomitant]
     Active Substance: PLATINUM
     Indication: Ovarian cancer
     Route: 065

REACTIONS (3)
  - Death [Fatal]
  - Ovarian cancer [Unknown]
  - Toxicity to various agents [Unknown]
